FAERS Safety Report 6642145-1 (Version None)
Quarter: 2010Q1

REPORT INFORMATION
  Report Type: 
  Country: None (occurrence: None)
  Receive Date: 20100319
  Receipt Date: 20100315
  Transmission Date: 20100710
  Serious: Yes (Other)
  Sender: FDA-Public Use
  Company Number: US-BRISTOL-MYERS SQUIBB COMPANY-14991939

PATIENT
  Age: 61 Year
  Sex: Female

DRUGS (2)
  1. AVAPRO [Suspect]
     Indication: BLOOD PRESSURE
     Route: 048
     Dates: start: 20100105, end: 20100211
  2. NAPROSYN [Suspect]

REACTIONS (3)
  - NAUSEA [None]
  - RASH [None]
  - VASCULITIS [None]
